FAERS Safety Report 6384481-2 (Version None)
Quarter: 2009Q3

REPORT INFORMATION
  Report Type: 
  Country: None (occurrence: None)
  Receive Date: 20090928
  Receipt Date: 20090623
  Transmission Date: 20100115
  Serious: Yes (Other)
  Sender: FDA-Public Use
  Company Number: E-09-203

PATIENT
  Age: 89 Year
  Sex: Female

DRUGS (2)
  1. SULFAMETHOXAZOLE AND TRIMETHOPRIM [Suspect]
     Indication: URINARY TRACT INFECTION
     Dosage: ONE, PO, BID
     Route: 048
     Dates: start: 20090501
  2. DESSICATED THYROID [Concomitant]

REACTIONS (3)
  - HAEMATURIA [None]
  - HYPONATRAEMIA [None]
  - LETHARGY [None]
